FAERS Safety Report 5160589-4 (Version None)
Quarter: 2006Q4

REPORT INFORMATION
  Report Type: 
  Country: None (occurrence: None)
  Receive Date: 20061129
  Receipt Date: 20061017
  Transmission Date: 20070319
  Serious: No
  Sender: FDA-Public Use
  Company Number: JP-MERCK-0611USA03807

PATIENT
  Age: 42 Year
  Sex: Male
  Weight: 63 kg

DRUGS (4)
  1. PROPECIA [Suspect]
     Indication: MALE PATTERN BALDNESS
     Route: 048
     Dates: start: 20060913
  2. GLYCYRON [Concomitant]
     Indication: ALOPECIA AREATA
     Route: 048
     Dates: start: 20051129
  3. CEPHARANTHINE [Concomitant]
     Indication: ALOPECIA AREATA
     Route: 048
     Dates: start: 20051129
  4. RINDERON-DP [Concomitant]
     Indication: ALOPECIA AREATA
     Route: 048
     Dates: start: 20051129

REACTIONS (2)
  - DIZZINESS [None]
  - VERTIGO [None]
